FAERS Safety Report 7364499-3 (Version None)
Quarter: 2011Q1

REPORT INFORMATION
  Report Type: 
  Country: None (occurrence: None)
  Receive Date: 20110321
  Receipt Date: 20110309
  Transmission Date: 20110831
  Serious: Yes (Life-Threatening)
  Sender: FDA-Public Use
  Company Number: JP-MERCK-1101USA03077

PATIENT
  Age: 79 Year
  Sex: Female
  Weight: 53 kg

DRUGS (11)
  1. WARFARIN POTASSIUM [Concomitant]
     Indication: ANTICOAGULANT THERAPY
     Route: 048
     Dates: start: 20101201
  2. VERAPAMIL HCL [Concomitant]
     Route: 048
     Dates: start: 20110115, end: 20110116
  3. JANUVIA [Suspect]
     Indication: DIABETES MELLITUS
     Route: 048
  4. VERAPAMIL HCL [Concomitant]
     Indication: HEART RATE ABNORMAL
     Route: 048
     Dates: start: 20101128, end: 20110114
  5. ARTIST [Concomitant]
     Indication: CARDIAC FAILURE
     Route: 048
     Dates: start: 20101206
  6. JANUVIA [Suspect]
     Route: 048
  7. PLAVIX [Concomitant]
     Indication: THROMBOSIS PROPHYLAXIS
     Route: 048
     Dates: start: 20101207
  8. AMARYL [Concomitant]
     Indication: DIABETES MELLITUS
     Route: 048
     Dates: start: 20101216, end: 20110110
  9. SENNOSIDES [Concomitant]
     Indication: DYSCHEZIA
     Route: 048
     Dates: start: 20101126
  10. NIKORANMART [Concomitant]
     Indication: CORONARY ARTERY INSUFFICIENCY
     Route: 048
     Dates: start: 20101207
  11. NU-LOTAN [Concomitant]
     Indication: HYPERTENSION
     Route: 048
     Dates: start: 20101203

REACTIONS (1)
  - LACTIC ACIDOSIS [None]
